FAERS Safety Report 5400021-6 (Version None)
Quarter: 2007Q3

REPORT INFORMATION
  Report Type: 
  Country: None (occurrence: None)
  Receive Date: 20070730
  Receipt Date: 20070719
  Transmission Date: 20080115
  Serious: Yes (Life-Threatening, Hospitalization)
  Sender: FDA-Public Use
  Company Number: HU-AMGEN-UK194375

PATIENT
  Sex: Male

DRUGS (1)
  1. PALIFERMIN [Suspect]
     Indication: MUCOSAL INFLAMMATION
     Route: 042
     Dates: start: 20060623, end: 20060818

REACTIONS (2)
  - ABDOMINAL ADHESIONS [None]
  - MECHANICAL ILEUS [None]
